FAERS Safety Report 5829427-8 (Version None)
Quarter: 2008Q3

REPORT INFORMATION
  Report Type: 
  Country: None (occurrence: None)
  Receive Date: 20080729
  Receipt Date: 20080714
  Transmission Date: 20090109
  Serious: Yes (Hospitalization)
  Sender: FDA-Public Use
  Company Number: 2008AL008189

PATIENT
  Age: 60 Year
  Sex: Female
  Weight: 75.2971 kg

DRUGS (5)
  1. DIGOXIN [Suspect]
     Indication: CARDIAC DISORDER
     Dosage: 0.125MG DAILY PO
     Route: 048
  2. GLUCOPHAGE [Concomitant]
  3. LASIX [Concomitant]
  4. COREG [Concomitant]
  5. THEOPHYLLINE [Concomitant]

REACTIONS (1)
  - MYOCARDIAL INFARCTION [None]
